FAERS Safety Report 5021639-9 (Version None)
Quarter: 2006Q2

REPORT INFORMATION
  Report Type: 
  Country: None (occurrence: None)
  Receive Date: 20060601
  Receipt Date: 20060313
  Transmission Date: 20061013
  Serious: No
  Sender: FDA-Public Use
  Company Number: 2006PV010045

PATIENT
  Age: 80 Year
  Sex: Male
  Weight: 90.7194 kg

DRUGS (9)
  1. BYETTA [Suspect]
     Indication: DIABETES MELLITUS NON-INSULIN-DEPENDENT
     Dosage: 5 MCG;BID;SC
     Route: 058
     Dates: start: 20060310
  2. AVANDIA [Concomitant]
  3. PRANDIN [Concomitant]
  4. ZETIA [Concomitant]
  5. LOTREL [Concomitant]
  6. PRAVACHOL [Concomitant]
  7. PAXIL CR [Concomitant]
  8. XANAX [Concomitant]
  9. COUMADIN [Concomitant]

REACTIONS (1)
  - BLOOD GLUCOSE INCREASED [None]
